FAERS Safety Report 5445663-7 (Version None)
Quarter: 2007Q3

REPORT INFORMATION
  Report Type: 
  Country: None (occurrence: None)
  Receive Date: 20070904
  Receipt Date: 20070822
  Transmission Date: 20080115
  Serious: Yes (Hospitalization)
  Sender: FDA-Public Use
  Company Number: 163-21880-06070908

PATIENT
  Age: 70 Year
  Sex: Female
  Weight: 69.4003 kg

DRUGS (82)
  1. REVLIMID [Suspect]
     Indication: MULTIPLE MYELOMA
     Dosage: 25 FEG, QD, ORAL
     Route: 048
     Dates: start: 20051208, end: 20060702
  2. DEXAMETHASONE TAB [Suspect]
     Indication: MULTIPLE MYELOMA
     Dosage: 40 MG, QD, ORAL
     Route: 048
     Dates: start: 20051208
  3. BIAXIN [Suspect]
     Indication: MULTIPLE MYELOMA
     Dosage: 500 MG, BID, ORAL
     Route: 048
     Dates: start: 20051208
  4. ZOSYN [Concomitant]
  5. DECADRON [Concomitant]
  6. BACTRIM DS [Concomitant]
  7. ASA (ACETYLSALICYLIC ACID) (TABLETS) [Concomitant]
  8. MYCELEX (CLOTIMAZOLE) [Concomitant]
  9. ARANESP [Concomitant]
  10. SENNA (SENNA) (TABLETS) [Concomitant]
  11. IRON (IRON) (TABLETS) [Concomitant]
  12. PRILOSEC [Concomitant]
  13. GLUCOPHAGE (METFORMIN HYDROCHLORIDE) (TABLETS) [Concomitant]
  14. ADVAIR DISKUS (SERETIDE MITE) [Concomitant]
  15. HUMULIN (NOVOLIN 20/80) [Concomitant]
  16. PERCOCET [Concomitant]
  17. ACETAMINOPHEN [Concomitant]
  18. METOCLOPRAMIDE (METOCLOPRAMIDE) [Concomitant]
  19. METOPROLOL TARTRATE [Concomitant]
  20. FENTANYL CITRATE [Concomitant]
  21. IPRATROPIUM BROMIDE (IPRATOPIUM BROMIDE) [Concomitant]
  22. LEVALBUTEROL (LEVOSALBUTAMOL HYDROCHLORIDE) [Concomitant]
  23. DEXTROSE 50% (GLUCOSE) [Concomitant]
  24. ILALOPERIDOL (HALOPERIDOL) [Concomitant]
  25. ALBUTEROL [Concomitant]
  26. HYDROMORPHONE HCL [Concomitant]
  27. CETYLPRIDINIUM (CETYLPRIDINIUM) [Concomitant]
  28. MORPHINE SULFATE [Concomitant]
  29. DIPHENHYDRAMINE HCL [Concomitant]
  30. HYDROCODONE APAP (HYDROCODONE) [Concomitant]
  31. ZOLPIDEM TARTRATE [Concomitant]
  32. IBUPROFEN [Concomitant]
  33. PIPERACILLIN AND TAZOBACTAM [Concomitant]
  34. FLUTICAS/SALMETEROL (GALENIC /FLUTICASONE/SALMETEROL) [Concomitant]
  35. LANSOPRAZOLE [Concomitant]
  36. DARBEPOIETIN ALFA HUMAN (DARBEPOETIN ALFA) [Concomitant]
  37. FLUCONAZOLE [Concomitant]
  38. LEVOFLOXACIN [Concomitant]
  39. METRONIDAZOLE [Concomitant]
  40. POTASSIUM CHLORIDE [Concomitant]
  41. GASTROGRAFIN [Concomitant]
  42. ACETYLCYSTEINE 20% (ACETYLCYSTEINE) (SOLUTION) [Concomitant]
  43. SODIUM POTASSIUM PHOSPHATE (POTASSIUM PHOSPHATE MONOBASIC) [Concomitant]
  44. ENOXAPAIN (ENOXAPARIN) (INJECTION) [Concomitant]
  45. MAGNESIUM SULFATE (IMAGNESIUM SULFATE) [Concomitant]
  46. METOCLOPRAMIDE (METOCLOPRAMIDE) [Concomitant]
  47. NEOMYCIN SULFATE [Concomitant]
  48. HEPARIN SODIUM [Concomitant]
  49. PROPOFOL [Concomitant]
  50. DOPAMINE HCL [Concomitant]
  51. FENTANYL [Concomitant]
  52. ERYTHROMYCIN [Concomitant]
  53. HYDROCORTISONE SUCCINATE (HYDROCORTISONE) [Concomitant]
  54. FAMOTIDINE [Concomitant]
  55. FUROSEMIDE [Concomitant]
  56. CEFEPIME [Concomitant]
  57. LABETOLOL (LABETOLOL) [Concomitant]
  58. ALBUMIN (HUMAN) [Concomitant]
  59. CESPOFUNGIN (CASPOFUNGIN) (INJECTION) [Concomitant]
  60. ACETAZOLAMIDE [Concomitant]
  61. VERAPAMIL [Concomitant]
  62. ALBUMIN (HUMAN) [Concomitant]
  63. CALCIUM GLUCONATE [Concomitant]
  64. HEPARIN LOCK FLUSH (HEPARIN SODIUM) [Concomitant]
  65. ERYTHROCIN LACTOBIONATE [Concomitant]
  66. OCTREOTIDE ACETATE (OCTREOTIDE ACETATE) [Concomitant]
  67. BISACODYL (BISACODYL) (SUPPOSITORY) [Concomitant]
  68. SILVER SULFADIAZINE (SULFADIAZINE SILVER) (CREAM) [Concomitant]
  69. MAGNEXIUM OXIDE (MAGNESIUM OXIDE) [Concomitant]
  70. LINEZOLID [Concomitant]
  71. AMPICILLIN [Concomitant]
  72. FAMOTIDINE [Concomitant]
  73. AMOXICILLIN CLAVULANATE (AMOXICILLIN V/CLAVULANATE POTASSIUM) [Concomitant]
  74. PREDNISONE TAB [Concomitant]
  75. SODIUM CHLORIDE 0.9% [Concomitant]
  76. INSULIN GLARGINE (INSULIN GLARGINE) [Concomitant]
  77. PREVACID [Concomitant]
  78. ZYVOX [Concomitant]
  79. K-DUR 10 [Concomitant]
  80. LANTUS [Concomitant]
  81. REGLAN [Concomitant]
  82. IMMODIUM (LOPERAMIDE HYDROCHLORIDE) [Concomitant]

REACTIONS (8)
  - ABDOMINAL ABSCESS [None]
  - BACK PAIN [None]
  - DIVERTICULAR FISTULA [None]
  - DIVERTICULUM [None]
  - DRUG INEFFECTIVE [None]
  - GASTROINTESTINAL FISTULA [None]
  - NUCLEAR MAGNETIC RESONANCE IMAGING ABNORMAL [None]
  - PERITONITIS [None]
